FAERS Safety Report 7584374-9 (Version None)
Quarter: 2011Q2

REPORT INFORMATION
  Report Type: 
  Country: None (occurrence: None)
  Receive Date: 20110630
  Receipt Date: 20110629
  Transmission Date: 20111010
  Serious: No
  Sender: FDA-Public Use
  Company Number: US-PFIZER INC-2011145394

PATIENT
  Sex: Female
  Weight: 74.83 kg

DRUGS (5)
  1. EFFEXOR XR [Suspect]
     Indication: ANXIETY
  2. VENLAFAXINE HCL [Suspect]
     Indication: HOT FLUSH
     Dosage: 37.5 MG, DAILY
     Route: 048
     Dates: start: 20080101
  3. EFFEXOR XR [Suspect]
     Indication: HOT FLUSH
     Dosage: 37.5 MG, DAILY
     Route: 048
     Dates: start: 20010101
  4. VENLAFAXINE HCL [Suspect]
     Indication: ANXIETY
  5. AROMASIN [Concomitant]
     Indication: BREAST CANCER FEMALE
     Dosage: 20MG OR 25MG, DAILY
     Route: 048

REACTIONS (6)
  - INFLUENZA [None]
  - MALAISE [None]
  - NAUSEA [None]
  - DRUG INEFFECTIVE [None]
  - DIZZINESS [None]
  - FEELING ABNORMAL [None]
